FAERS Safety Report 7201778-4 (Version None)
Quarter: 2010Q4

REPORT INFORMATION
  Report Type: 
  Country: None (occurrence: None)
  Receive Date: 20101229
  Receipt Date: 20101220
  Transmission Date: 20110411
  Serious: Yes (Hospitalization)
  Sender: FDA-Public Use
  Company Number: CH-ASTRAZENECA-2010SE60174

PATIENT
  Age: 50 Year
  Sex: Male
  Weight: 123 kg

DRUGS (16)
  1. SEROQUEL XR [Suspect]
     Indication: SCHIZOAFFECTIVE DISORDER DEPRESSIVE TYPE
     Route: 048
     Dates: start: 20101103
  2. SEROQUEL XR [Interacting]
     Dosage: 1-4 X 50 MG/DAY IN RESERVE
     Route: 048
     Dates: start: 20101103
  3. SEROQUEL XR [Interacting]
     Route: 048
     Dates: start: 20101105
  4. SEROQUEL XR [Interacting]
     Route: 048
     Dates: start: 20101120
  5. SEROQUEL XR [Interacting]
     Route: 048
     Dates: start: 20101124
  6. REMERON [Interacting]
     Indication: SCHIZOAFFECTIVE DISORDER DEPRESSIVE TYPE
     Route: 048
     Dates: start: 20101109
  7. REMERON [Interacting]
     Route: 048
     Dates: start: 20101112
  8. REMERON [Interacting]
     Route: 048
     Dates: start: 20101119
  9. CIPRALEX [Interacting]
     Indication: SCHIZOAFFECTIVE DISORDER DEPRESSIVE TYPE
     Route: 048
     Dates: start: 20100101
  10. ANXIOLIT [Concomitant]
     Route: 048
     Dates: start: 20101103
  11. ANXIOLIT [Concomitant]
     Route: 048
     Dates: start: 20101119
  12. CAMPRAL [Concomitant]
     Route: 048
     Dates: start: 20100101
  13. BECOZYME [Concomitant]
     Route: 048
     Dates: start: 20100101
  14. BENERVA [Concomitant]
     Route: 048
     Dates: start: 20100101
  15. FERRO GRADUMET [Concomitant]
     Route: 048
     Dates: start: 20100101
  16. ZYLORIC [Concomitant]
     Route: 048
     Dates: start: 20100101

REACTIONS (2)
  - CONVULSION [None]
  - DRUG INTERACTION [None]
